FAERS Safety Report 6249576-2 (Version None)
Quarter: 2009Q2

REPORT INFORMATION
  Report Type: 
  Country: None (occurrence: None)
  Receive Date: 20090625
  Receipt Date: 20090616
  Transmission Date: 20091009
  Serious: Yes (Other)
  Sender: FDA-Public Use
  Company Number: 2009EU002291

PATIENT
  Age: 75 Year
  Sex: Female
  Weight: 71.4 kg

DRUGS (4)
  1. VESICARE [Suspect]
     Indication: URINARY INCONTINENCE
     Dosage: 5 MG, /D, ORAL
     Route: 048
     Dates: start: 20090609
  2. PARACETAMOL [Concomitant]
  3. METFORMIN HCL [Concomitant]
  4. FOSAMAX [Concomitant]

REACTIONS (6)
  - MALAISE [None]
  - MICTURITION FREQUENCY DECREASED [None]
  - MOBILITY DECREASED [None]
  - MUSCULAR WEAKNESS [None]
  - SOMNOLENCE [None]
  - VISION BLURRED [None]
